FAERS Safety Report 12581349 (Version 4)
Quarter: 2018Q3

REPORT INFORMATION
  Report Type: Spontaneous
  Country: US (occurrence: US)
  Receive Date: 20160721
  Receipt Date: 20180731
  Transmission Date: 20181010
  Serious: Yes (Other)
  Sender: FDA-Public Use
  Company Number: US-JAZZ-JPI-P-016743

PATIENT
  Age: 63 Year
  Sex: Female
  Weight: 63 kg

DRUGS (4)
  1. XYREM [Suspect]
     Active Substance: SODIUM OXYBATE
     Indication: NARCOLEPSY
     Dosage: 3 G, BID
     Route: 048
     Dates: start: 20030411
  2. XYREM [Suspect]
     Active Substance: SODIUM OXYBATE
     Indication: CATAPLEXY
     Dosage: 3.75 G, BID
     Route: 048
     Dates: start: 20071025
  3. MODAFINIL. [Concomitant]
     Active Substance: MODAFINIL
     Indication: PRODUCT USED FOR UNKNOWN INDICATION
     Dosage: UNK UNK, SINGLE
  4. BUPROPION HCL [Concomitant]
     Active Substance: BUPROPION HYDROCHLORIDE
     Indication: PRODUCT USED FOR UNKNOWN INDICATION
     Dosage: UNK UNK, SINGLE

REACTIONS (12)
  - Ovarian cancer [Recovered/Resolved]
  - Inappropriate schedule of drug administration [Unknown]
  - Lymphoma [Not Recovered/Not Resolved]
  - Knee arthroplasty [Unknown]
  - Dermatitis [Not Recovered/Not Resolved]
  - Weight decreased [Recovered/Resolved]
  - Enuresis [Recovered/Resolved]
  - Crying [Not Recovered/Not Resolved]
  - Arthropod bite [Not Recovered/Not Resolved]
  - Stress [Unknown]
  - Depression [Unknown]
  - Weight increased [Not Recovered/Not Resolved]

NARRATIVE: CASE EVENT DATE: 200808
